FAERS Safety Report 5882637-6 (Version None)
Quarter: 2008Q3

REPORT INFORMATION
  Report Type: 
  Country: None (occurrence: None)
  Receive Date: 20080913
  Receipt Date: 20080811
  Transmission Date: 20090109
  Serious: No
  Sender: FDA-Public Use
  Company Number: US-ABBOTT-08P-163-0470198-00

PATIENT
  Sex: Male
  Weight: 90.8 kg

DRUGS (3)
  1. HUMIRA [Suspect]
     Indication: PSORIATIC ARTHROPATHY
     Route: 050
     Dates: start: 20080701
  2. PIROXICAM [Concomitant]
     Indication: PAIN
     Route: 048
     Dates: start: 20080201
  3. OMEPRAZOLE MAGNESIUM [Concomitant]
     Indication: GASTROOESOPHAGEAL REFLUX DISEASE
     Route: 048
     Dates: start: 20050101

REACTIONS (1)
  - INJECTION SITE PAIN [None]
